FAERS Safety Report 24214658 (Version 1)
Quarter: 2024Q3

REPORT INFORMATION
  Report Type: Spontaneous
  Country: US (occurrence: US)
  Receive Date: 20240815
  Receipt Date: 20240815
  Transmission Date: 20241017
  Serious: No
  Sender: RVL PHARMACEUTICALS
  Company Number: US-RVL_Pharmaceuticals-USA-POI1255202300269

PATIENT
  Age: 65 Year
  Sex: Female

DRUGS (2)
  1. UPNEEQ [Suspect]
     Active Substance: OXYMETAZOLINE HYDROCHLORIDE
     Indication: Eyelid ptosis
     Dosage: OU
     Route: 047
     Dates: start: 202310, end: 202310
  2. BLINK EYE DROPS [Concomitant]
     Indication: Ocular discomfort

REACTIONS (2)
  - Dry eye [Recovered/Resolved]
  - Eye irritation [Recovered/Resolved]

NARRATIVE: CASE EVENT DATE: 20231001
